FAERS Safety Report 9222481 (Version 1)
Quarter: 2013Q2

REPORT INFORMATION
  Report Type: Spontaneous
  Country: FR (occurrence: FR)
  Receive Date: 20130410
  Receipt Date: 20130410
  Transmission Date: 20140414
  Serious: Yes (Hospitalization, Other)
  Sender: FDA-Public Use
  Company Number: FR-BAYER-2013-043961

PATIENT
  Age: 53 Year
  Sex: Male

DRUGS (10)
  1. DICLOFENAC [Suspect]
     Indication: GOUT
     Dosage: 50 MG, QID
  2. ACETYLSALICYLIC ACID [Suspect]
     Indication: GOUT
     Dosage: 500 MG, TID
  3. FUROSEMIDE [Suspect]
     Dosage: DAILY DOSE 20 MG
  4. FUROSEMIDE [Suspect]
     Dosage: 20 MG, IN COMBINATION WITH SPIRONOLACTONE
  5. OLMESARTAN [Suspect]
     Dosage: DAILY DOSE 40 MG
  6. METFORMIN [Suspect]
     Dosage: 700 MG, TID
  7. SPIRONOLACTONE [Suspect]
     Dosage: 50 MG, UNK
  8. COLCHICINE [Suspect]
     Indication: GOUT
     Dosage: 6 MG, PER DAY
  9. LANTUS [Concomitant]
     Indication: TYPE 2 DIABETES MELLITUS
     Dosage: 28 IU, QD (IN THE MORNING)
  10. NOVORAPID [Concomitant]
     Indication: TYPE 2 DIABETES MELLITUS
     Dosage: 20 IU, TID

REACTIONS (12)
  - Neuromyopathy [Recovered/Resolved]
  - Muscular weakness [Recovered/Resolved]
  - Rhabdomyolysis [Recovered/Resolved]
  - Motor dysfunction [Recovered/Resolved]
  - Abasia [Recovered/Resolved]
  - Paraesthesia [Recovered/Resolved]
  - Diarrhoea [None]
  - Nausea [None]
  - Vomiting [None]
  - Renal failure acute [None]
  - Toxicity to various agents [None]
  - Drug interaction [None]
